FAERS Safety Report 8227743-6 (Version None)
Quarter: 2012Q1

REPORT INFORMATION
  Report Type: 
  Country: None (occurrence: None)
  Receive Date: 20120322
  Receipt Date: 20120316
  Transmission Date: 20120608
  Serious: No
  Sender: FDA-Public Use
  Company Number: US-BAYER-2012-027201

PATIENT
  Age: 34 Year
  Sex: Male
  Weight: 107.3 kg

DRUGS (1)
  1. ALEVE (CAPLET) [Suspect]
     Indication: BACK PAIN
     Dosage: 3 TABS USED ONLY ONE TIME
     Route: 048
     Dates: start: 20120316, end: 20120316

REACTIONS (1)
  - NO ADVERSE EVENT [None]
